FAERS Safety Report 4451552-7 (Version None)
Quarter: 2004Q3

REPORT INFORMATION
  Report Type: 
  Country: None (occurrence: None)
  Receive Date: 20040915
  Receipt Date: 20040831
  Transmission Date: 20050211
  Serious: Yes (Hospitalization)
  Sender: FDA-Public Use
  Company Number: CIP04001378

PATIENT
  Age: 21 Year
  Sex: Male

DRUGS (4)
  1. ASACOL [Suspect]
     Indication: COLITIS ULCERATIVE
     Dosage: 2400 MG DAILY, ORAL; 800 200 TWO TO THREE TIME DAILY, ORAL
     Route: 048
     Dates: end: 20040601
  2. ASACOL [Suspect]
     Indication: COLITIS ULCERATIVE
     Dosage: 2400 MG DAILY, ORAL; 800 200 TWO TO THREE TIME DAILY, ORAL
     Route: 048
     Dates: start: 20040329, end: 20040712
  3. REGLAN / USA/(METOCLOPRAMIDE HYDROCHLORIDE) [Concomitant]
  4. DOMPERIDONE (DOMPERIDONE) [Concomitant]

REACTIONS (8)
  - COLITIS ULCERATIVE [None]
  - CONDITION AGGRAVATED [None]
  - GASTRIC POLYPS [None]
  - GASTRITIS [None]
  - GASTROENTERITIS EOSINOPHILIC [None]
  - MALAISE [None]
  - NAUSEA [None]
  - VOMITING [None]
